FAERS Safety Report 7398875-X (Version None)
Quarter: 2011Q2

REPORT INFORMATION
  Report Type: 
  Country: None (occurrence: None)
  Receive Date: 20110407
  Receipt Date: 20110331
  Transmission Date: 20111010
  Serious: Yes (Hospitalization, Other)
  Sender: FDA-Public Use
  Company Number: FR-ASTELLAS-2011EU001755

PATIENT
  Sex: Male

DRUGS (5)
  1. PROGRAF [Suspect]
     Indication: LIVER TRANSPLANT
     Dosage: UNK
     Route: 065
     Dates: start: 20090101
  2. CORTICOSTEROID NOS [Concomitant]
     Indication: LIVER TRANSPLANT
     Dosage: UNK
     Route: 065
     Dates: start: 20090101
  3. PROGRAF [Interacting]
     Dosage: UNK
     Route: 065
  4. BRISTOPEN [Interacting]
     Indication: INFECTION
     Dosage: UNK
     Route: 065
     Dates: start: 20090101
  5. IMMUNOSUPPRESSIVE AGENTS [Concomitant]
     Dosage: UNK
     Route: 065
     Dates: start: 20090101

REACTIONS (4)
  - RENAL FAILURE [None]
  - DRUG INTERACTION [None]
  - INFECTION [None]
  - IMMUNOSUPPRESSANT DRUG LEVEL INCREASED [None]
